FAERS Safety Report 23863929 (Version 1)
Quarter: 2024Q2

REPORT INFORMATION
  Report Type: Spontaneous
  Country: DE (occurrence: DE)
  Receive Date: 20240516
  Receipt Date: 20240516
  Transmission Date: 20240716
  Serious: Yes (Hospitalization, Other)
  Sender: FDA-Public Use
  Company Number: DE-HIKMA PHARMACEUTICALS-DE-H14001-24-03789

PATIENT
  Age: 48 Year
  Sex: Male

DRUGS (5)
  1. LEUCOVORIN [Suspect]
     Active Substance: LEUCOVORIN\LEUCOVORIN CALCIUM
     Indication: Oesophageal adenocarcinoma
     Dosage: 400 MILLIGRAM/SQ. METER
     Route: 042
  2. OXALIPLATIN [Suspect]
     Active Substance: OXALIPLATIN
     Indication: Oesophageal adenocarcinoma
     Dosage: 85 MILLIGRAM/SQ. METER
     Route: 042
     Dates: start: 20231212
  3. SIREXATAMAB [Suspect]
     Active Substance: SIREXATAMAB
     Indication: Oesophageal adenocarcinoma
     Dosage: 400 MILLIGRAM?FORM OF ADMIN. POWDER FOR CONCENTRATE FOR SOLUTION FOR INFUSION
     Route: 042
     Dates: start: 20231212
  4. TISLELIZUMAB [Suspect]
     Active Substance: TISLELIZUMAB
     Indication: Oesophageal adenocarcinoma
     Dosage: 400 MILLIGRAM?SOLUTION FOR SOLUTION FOR INFUSION
     Route: 042
     Dates: start: 20231212
  5. FLUOROURACIL [Suspect]
     Active Substance: FLUOROURACIL
     Indication: Oesophageal adenocarcinoma
     Dosage: 2400 MILLIGRAM/SQ. METER
     Route: 042
     Dates: start: 20231212

REACTIONS (1)
  - Neutrophil count decreased [Recovered/Resolved]

NARRATIVE: CASE EVENT DATE: 20240131
